FAERS Safety Report 10067911 (Version 3)
Quarter: 2014Q2

REPORT INFORMATION
  Report Type: Report from Study
  Country: US (occurrence: US)
  Receive Date: 20140409
  Receipt Date: 20140421
  Transmission Date: 20141212
  Serious: Yes (Hospitalization)
  Sender: FDA-Public Use
  Company Number: US-ACTELION-A-US2014-96864

PATIENT
  Age: 63 Year
  Sex: Female

DRUGS (2)
  1. VENTAVIS [Suspect]
     Indication: PULMONARY ARTERIAL HYPERTENSION
     Dosage: 5 MCG, 6-9 XDAY
     Route: 055
     Dates: start: 20140320
  2. REVATIO [Concomitant]

REACTIONS (10)
  - Hypokalaemia [Recovering/Resolving]
  - Blood potassium increased [Recovering/Resolving]
  - Electrolyte imbalance [Recovering/Resolving]
  - Muscle spasms [Recovering/Resolving]
  - Stress [Recovering/Resolving]
  - Nausea [Unknown]
  - Frustration [Recovering/Resolving]
  - Crying [Unknown]
  - Fatigue [Recovering/Resolving]
  - Urinary retention [Recovering/Resolving]
